FAERS Safety Report 23275123 (Version 1)
Quarter: 2023Q4

REPORT INFORMATION
  Report Type: Spontaneous
  Country: CN (occurrence: CN)
  Receive Date: 20231208
  Receipt Date: 20231208
  Transmission Date: 20240110
  Serious: Yes (Other)
  Sender: FDA-Public Use
  Company Number: CN-BAUSCHBL-2023BNL012560

PATIENT
  Age: 4 Year
  Sex: Female

DRUGS (12)
  1. ERYTHROMYCIN [Suspect]
     Active Substance: ERYTHROMYCIN
     Indication: Encephalitis autoimmune
     Dosage: DAY 28-33
     Route: 065
     Dates: start: 20220701, end: 20220706
  2. RITUXIMAB [Concomitant]
     Active Substance: RITUXIMAB
     Indication: Encephalitis autoimmune
     Dosage: DAY 24
     Dates: start: 20220627, end: 20220627
  3. RITUXIMAB [Concomitant]
     Active Substance: RITUXIMAB
     Dosage: DAY 31
     Dates: start: 20220704, end: 20220704
  4. RITUXIMAB [Concomitant]
     Active Substance: RITUXIMAB
     Dosage: DAY 37
     Dates: start: 20220710, end: 20220710
  5. CEFOPERAZONE\SULBACTAM SODIUM [Concomitant]
     Active Substance: CEFOPERAZONE\SULBACTAM SODIUM
     Indication: Encephalitis autoimmune
     Dosage: DAY 28 TO 42
     Dates: start: 20220701, end: 20220715
  6. METHYLPREDNISOLONE [Concomitant]
     Active Substance: METHYLPREDNISOLONE
     Indication: Encephalitis autoimmune
     Dosage: DAY 6-8 (FIRST-LINE IMMUNOTHERAPY)
     Dates: start: 20220609, end: 20220611
  7. METHYLPREDNISOLONE [Concomitant]
     Active Substance: METHYLPREDNISOLONE
     Dosage: DAY 13-15
     Dates: start: 20220616, end: 20220618
  8. METHYLPREDNISOLONE [Concomitant]
     Active Substance: METHYLPREDNISOLONE
     Dosage: DAY 20-23
     Dates: start: 20220623, end: 20220626
  9. CEFTRIAXONE [Concomitant]
     Active Substance: CEFTRIAXONE\CEFTRIAXONE SODIUM
     Indication: Encephalitis autoimmune
     Dosage: DAY 2-27
     Dates: start: 20220605, end: 20220630
  10. IMMUNE GLOBULIN NOS [Concomitant]
     Active Substance: IMMUNE GLOBULIN NOS
     Indication: Encephalitis autoimmune
     Dosage: DAY 3-5 (FIRST-LINE IMMUNOTHERAPY)
     Dates: start: 20220606, end: 20220608
  11. IMMUNE GLOBULIN NOS [Concomitant]
     Active Substance: IMMUNE GLOBULIN NOS
     Dosage: DAY 18-19
     Dates: start: 20220622, end: 20220623
  12. IMMUNE GLOBULIN NOS [Concomitant]
     Active Substance: IMMUNE GLOBULIN NOS
     Dosage: DAY 38-39
     Dates: start: 20220710, end: 20220711

REACTIONS (1)
  - Hepatic enzyme increased [Recovering/Resolving]

NARRATIVE: CASE EVENT DATE: 20220706
